FAERS Safety Report 10994427 (Version 1)
Quarter: 2015Q2

REPORT INFORMATION
  Report Type: Spontaneous
  Country: US (occurrence: None)
  Receive Date: 20150406
  Receipt Date: 20150406
  Transmission Date: 20150821
  Serious: No
  Sender: FDA-Public Use
  Company Number: None

PATIENT
  Age: 67 Year
  Sex: Female
  Weight: 52.16 kg

DRUGS (15)
  1. CEFDINIR. [Suspect]
     Active Substance: CEFDINIR
     Indication: BACK PAIN
     Dosage: 1 PILS
     Route: 048
     Dates: start: 20150113, end: 20150118
  2. ESTRATEST [Concomitant]
     Active Substance: ESTROGENS, ESTERIFIED\METHYLTESTOSTERONE
  3. BABY ASPIRIN [Concomitant]
     Active Substance: ASPIRIN
  4. CALCIUM + VITAMIN D [Concomitant]
     Active Substance: CALCIUM\VITAMIN D
  5. CELEBREX [Concomitant]
     Active Substance: CELECOXIB
  6. NASONEX [Concomitant]
     Active Substance: MOMETASONE FUROATE
  7. MORPHINE [Concomitant]
     Active Substance: MORPHINE
  8. LEVOXYL [Concomitant]
     Active Substance: LEVOTHYROXINE SODIUM
  9. MULTIVITAMINS [Concomitant]
     Active Substance: VITAMINS
  10. CLARITIN [Concomitant]
     Active Substance: LORATADINE
  11. CEFDINIR. [Suspect]
     Active Substance: CEFDINIR
     Indication: FIBROMYALGIA
     Dosage: 1 PILS
     Route: 048
     Dates: start: 20150113, end: 20150118
  12. AMITRIPTYLINE [Concomitant]
     Active Substance: AMITRIPTYLINE
  13. BACLOFEN. [Concomitant]
     Active Substance: BACLOFEN
  14. NEXIUM [Concomitant]
     Active Substance: ESOMEPRAZOLE MAGNESIUM
  15. BENADRYL [Concomitant]
     Active Substance: DIPHENHYDRAMINE HYDROCHLORIDE

REACTIONS (2)
  - Dyspepsia [None]
  - Product substitution issue [None]

NARRATIVE: CASE EVENT DATE: 20150114
